FAERS Safety Report 8771817 (Version 2)
Quarter: 2012Q4

REPORT INFORMATION
  Report Type: 
  Country: CA (occurrence: CA)
  Receive Date: 20120904
  Receipt Date: 20120927
  Transmission Date: 20130627
  Serious: Yes (Other)
  Sender: FDA-Public Use
  Company Number: CA-ELI_LILLY_AND_COMPANY-CA201208009149

PATIENT
  Age: 82 Year
  Sex: Female
  Weight: 52.2 kg

DRUGS (2)
  1. FORTEO [Suspect]
     Indication: OSTEOPOROSIS
     Dosage: UNK, unknown
     Route: 058
     Dates: start: 20100129, end: 20120203
  2. DECADRON                                /CAN/ [Concomitant]
     Dosage: 8 mg, qd

REACTIONS (1)
  - Glioblastoma multiforme [Not Recovered/Not Resolved]
